FAERS Safety Report 4350491-X (Version None)
Quarter: 2004Q2

REPORT INFORMATION
  Report Type: 
  Country: None (occurrence: None)
  Receive Date: 20040430
  Receipt Date: 20040407
  Transmission Date: 20050107
  Serious: Yes (Death)
  Sender: FDA-Public Use
  Company Number: 200411239JP

PATIENT
  Age: 71 Year
  Sex: Male
  Weight: 48 kg

DRUGS (10)
  1. TAXOTERE [Suspect]
     Indication: NON-SMALL CELL LUNG CANCER RECURRENT
     Route: 041
     Dates: start: 20020625, end: 20020625
  2. GEMZAR [Suspect]
     Indication: NON-SMALL CELL LUNG CANCER RECURRENT
     Route: 041
     Dates: start: 20020618, end: 20020625
  3. DECADRON [Concomitant]
     Indication: HYPERSENSITIVITY
     Route: 048
  4. RESTAMIN [Concomitant]
     Indication: HYPERSENSITIVITY
     Route: 048
  5. MS CONTIN [Concomitant]
     Indication: PAIN
     Route: 048
     Dates: start: 20020624, end: 20020723
  6. LOXONIN [Concomitant]
     Indication: PAIN
     Route: 048
     Dates: start: 20020626, end: 20020720
  7. ADALAT [Concomitant]
     Indication: HYPERTENSION
     Route: 048
     Dates: start: 20020308, end: 20020728
  8. DIPYRIDAMOLE [Concomitant]
     Indication: BRONCHITIS CHRONIC
     Route: 048
     Dates: start: 20020305, end: 20020713
  9. THEO-DUR [Concomitant]
     Indication: BRONCHITIS CHRONIC
     Route: 048
     Dates: start: 20020305, end: 20020727
  10. HALCION [Concomitant]
     Indication: INSOMNIA
     Route: 048
     Dates: start: 20020227, end: 20020728

REACTIONS (3)
  - GENERAL PHYSICAL HEALTH DETERIORATION [None]
  - INTERSTITIAL LUNG DISEASE [None]
  - STRIDOR [None]
